FAERS Safety Report 12114696 (Version 2)
Quarter: 2016Q2

REPORT INFORMATION
  Report Type: Spontaneous
  Country: US (occurrence: US)
  Receive Date: 20160225
  Receipt Date: 20160527
  Transmission Date: 20160815
  Serious: No
  Sender: FDA-Public Use
  Company Number: US-RAPTOR PHARMACEUTICALS, INC.-RAP-001006-2016

PATIENT
  Age: 1 Year
  Sex: Female

DRUGS (7)
  1. ENALAPRIL [Suspect]
     Active Substance: ENALAPRIL
     Indication: NEPHROPROTECTIVE THERAPY
     Dosage: 0.6 ML, BID
     Route: 048
     Dates: start: 201601
  2. PHOSNAK [Concomitant]
     Indication: PRODUCT USED FOR UNKNOWN INDICATION
     Dosage: 1 DF(PACKET), TID
     Route: 065
  3. PROCYSBI DELAYED-RELEASE [Suspect]
     Active Substance: CYSTEAMINE BITARTRATE
     Indication: CYSTINOSIS
     Dosage: 125 MG, EVERY 12 HOURS
     Route: 048
     Dates: start: 201512, end: 20160108
  4. L-CARNITINE [Suspect]
     Active Substance: LEVOCARNITINE
     Indication: CYSTINOSIS
     Dosage: 0.6 ML, QID
     Route: 048
     Dates: start: 201601
  5. POLYCITRA-K [Concomitant]
     Indication: PRODUCT USED FOR UNKNOWN INDICATION
     Dosage: 5 ML, TID
     Route: 065
  6. PROCYSBI DELAYED-RELEASE [Suspect]
     Active Substance: CYSTEAMINE BITARTRATE
     Dosage: 150 MG, EVERY 12 HOURS
     Route: 048
     Dates: start: 20160109, end: 20160111
  7. PROCYSBI DELAYED-RELEASE [Suspect]
     Active Substance: CYSTEAMINE BITARTRATE
     Dosage: 125 MG, EVERY 12 HOURS
     Route: 048
     Dates: start: 20160112

REACTIONS (6)
  - Urine odour abnormal [Not Recovered/Not Resolved]
  - Vomiting [Recovered/Resolved]
  - Drug administered to patient of inappropriate age [Not Recovered/Not Resolved]
  - Abnormal faeces [Not Recovered/Not Resolved]
  - Nausea [Recovered/Resolved]
  - Amino acid level abnormal [Not Recovered/Not Resolved]

NARRATIVE: CASE EVENT DATE: 201512
